FAERS Safety Report 10221222 (Version 1)
Quarter: 2014Q2

REPORT INFORMATION
  Report Type: Spontaneous
  Country: US (occurrence: US)
  Receive Date: 20140606
  Receipt Date: 20140606
  Transmission Date: 20141212
  Serious: No
  Sender: FDA-Public Use
  Company Number: US-GLAXOSMITHKLINE-A1065413A

PATIENT
  Age: 71 Year
  Sex: Male

DRUGS (2)
  1. BREO ELLIPTA [Suspect]
     Indication: CHRONIC OBSTRUCTIVE PULMONARY DISEASE
     Dosage: 1PUFF PER DAY
     Route: 055
     Dates: start: 20140314, end: 20140316
  2. NEXIUM [Concomitant]

REACTIONS (9)
  - Oropharyngeal pain [Recovered/Resolved]
  - Ill-defined disorder [Not Recovered/Not Resolved]
  - Dyspnoea exertional [Recovered/Resolved]
  - Dyspnoea [Not Recovered/Not Resolved]
  - Pain [Recovered/Resolved]
  - Lethargy [Recovered/Resolved]
  - Arthralgia [Recovered/Resolved]
  - Listless [Unknown]
  - Feeling abnormal [Unknown]
